FAERS Safety Report 4340034-9 (Version None)
Quarter: 2004Q2

REPORT INFORMATION
  Report Type: 
  Country: None (occurrence: None)
  Receive Date: 20040416
  Receipt Date: 20031114
  Transmission Date: 20050107
  Serious: Yes (Other)
  Sender: FDA-Public Use
  Company Number: US-ROCHE-352032

PATIENT
  Age: 54 Year
  Sex: Female
  Weight: 54.4 kg

DRUGS (1)
  1. ACCUTANE [Suspect]
     Indication: SQUAMOUS CELL CARCINOMA
     Route: 048
     Dates: start: 20030715, end: 20030807

REACTIONS (7)
  - CHROMATURIA [None]
  - FEELING ABNORMAL [None]
  - HEADACHE [None]
  - HEPATITIS [None]
  - HEPATOTOXICITY [None]
  - THERAPEUTIC AGENT TOXICITY [None]
  - VOMITING [None]
